FAERS Safety Report 6272687-2 (Version None)
Quarter: 2009Q3

REPORT INFORMATION
  Report Type: 
  Country: None (occurrence: None)
  Receive Date: 20090716
  Receipt Date: 20090716
  Transmission Date: 20100115
  Serious: No
  Sender: FDA-Public Use
  Company Number: None

PATIENT
  Sex: Male
  Weight: 85.9 kg

DRUGS (2)
  1. LISINOPRIL [Suspect]
     Indication: MYOCARDIAL INFARCTION
     Dosage: 5 MG. LISINOPRIL ONCE DAILY ORAL; CURRENT
     Route: 048
  2. PLAVIX [Suspect]
     Indication: MYOCARDIAL INFARCTION
     Dosage: 75 MG PLAVIX ONCE DAILY ORAL; CURRENT
     Route: 048

REACTIONS (3)
  - COUGH [None]
  - GASTRIC HAEMORRHAGE [None]
  - SLEEP DISORDER [None]
